FAERS Safety Report 19811324 (Version 3)
Quarter: 2022Q1

REPORT INFORMATION
  Report Type: Report from Study
  Country: CA (occurrence: CA)
  Receive Date: 20210909
  Receipt Date: 20220103
  Transmission Date: 20220423
  Serious: Yes (Other)
  Sender: FDA-Public Use
  Company Number: CA-JNJFOC-20210602664

PATIENT
  Age: 12 Year
  Sex: Female
  Weight: 48 kg

DRUGS (3)
  1. REMICADE [Suspect]
     Active Substance: INFLIXIMAB
     Indication: Crohn^s disease
     Dosage: RECEIVED TREATMENT ON 15/JAN/2018?PATIENT RECEIVED REMICADE TREATMENT ON 03-SEP-2021
     Route: 042
     Dates: start: 20180111, end: 20211016
  2. REMICADE [Suspect]
     Active Substance: INFLIXIMAB
     Indication: Colitis
  3. COVID-19 VACCINE [Concomitant]
     Indication: COVID-19 prophylaxis
     Route: 065
     Dates: start: 20210601, end: 20210601

REACTIONS (9)
  - Rash [Not Recovered/Not Resolved]
  - Eye swelling [Not Recovered/Not Resolved]
  - Pyoderma gangrenosum [Not Recovered/Not Resolved]
  - Skin exfoliation [Unknown]
  - Skin exfoliation [Unknown]
  - Eyelid bleeding [Unknown]
  - Madarosis [Unknown]
  - Dry eye [Unknown]
  - Eye infection [Not Recovered/Not Resolved]

NARRATIVE: CASE EVENT DATE: 20200602
